FAERS Safety Report 6679574-6 (Version None)
Quarter: 2010Q2

REPORT INFORMATION
  Report Type: 
  Country: None (occurrence: None)
  Receive Date: 20100413
  Receipt Date: 20100305
  Transmission Date: 20101027
  Serious: Yes (Life-Threatening, Hospitalization, Other)
  Sender: FDA-Public Use
  Company Number: US-BAXTER-2009BH014197

PATIENT
  Age: 76 Year
  Sex: Female
  Weight: 63 kg

DRUGS (18)
  1. HEPARIN SODIUM INJECTION [Suspect]
     Indication: THROMBOSIS PROPHYLAXIS
     Route: 042
     Dates: start: 20071005, end: 20071005
  2. HEPARIN SODIUM INJECTION [Suspect]
     Indication: ARTERIOVENOUS FISTULA OPERATION
     Route: 042
     Dates: start: 20071005, end: 20071005
  3. HEPARIN SODIUM INJECTION [Suspect]
     Route: 010
     Dates: start: 20071001, end: 20071001
  4. HEPARIN SODIUM INJECTION [Suspect]
     Route: 010
     Dates: start: 20071001, end: 20071001
  5. VESICARE [Concomitant]
     Indication: DRUG USE FOR UNKNOWN INDICATION
     Route: 065
  6. METOPROLOL TARTRATE [Concomitant]
     Indication: DRUG USE FOR UNKNOWN INDICATION
     Route: 065
  7. NEPHROCAPS [Concomitant]
     Indication: DRUG USE FOR UNKNOWN INDICATION
     Route: 048
  8. HECTOROL [Concomitant]
     Indication: DRUG USE FOR UNKNOWN INDICATION
     Route: 065
  9. AMLODIPINE BESYLATE [Concomitant]
     Indication: DRUG USE FOR UNKNOWN INDICATION
     Route: 065
  10. MICARDIS HCT [Concomitant]
     Indication: DRUG USE FOR UNKNOWN INDICATION
     Route: 065
  11. OXYTROL [Concomitant]
     Indication: DRUG USE FOR UNKNOWN INDICATION
     Route: 065
  12. CEFDINIR [Concomitant]
     Indication: DRUG USE FOR UNKNOWN INDICATION
     Route: 065
  13. PROMETHAZINE DM [Concomitant]
     Indication: DRUG USE FOR UNKNOWN INDICATION
     Route: 065
  14. GATIFLOXACIN [Concomitant]
     Indication: DRUG USE FOR UNKNOWN INDICATION
     Route: 065
  15. EZETIMIBE [Concomitant]
     Indication: DRUG USE FOR UNKNOWN INDICATION
     Route: 065
  16. PREMARIN [Concomitant]
     Indication: DRUG USE FOR UNKNOWN INDICATION
     Route: 065
  17. HYDROCHLOROTHIAZIDE [Concomitant]
     Indication: DRUG USE FOR UNKNOWN INDICATION
     Route: 065
  18. CIPROFLOXACIN HYDROCHLORIDE [Concomitant]
     Indication: DRUG USE FOR UNKNOWN INDICATION
     Route: 065

REACTIONS (14)
  - ARRHYTHMIA [None]
  - ATRIAL FIBRILLATION [None]
  - BLOOD PRESSURE DECREASED [None]
  - CARDIAC ARREST [None]
  - CARDIAC FAILURE CONGESTIVE [None]
  - CHEST DISCOMFORT [None]
  - DIALYSIS DISEQUILIBRIUM SYNDROME [None]
  - DRUG HYPERSENSITIVITY [None]
  - DYSPNOEA [None]
  - HALLUCINATION [None]
  - HEART RATE IRREGULAR [None]
  - OEDEMA PERIPHERAL [None]
  - SYNCOPE [None]
  - THROMBOCYTOPENIA [None]
